FAERS Safety Report 14154650 (Version 2)
Quarter: 2017Q4

REPORT INFORMATION
  Report Type: Spontaneous
  Country: JP (occurrence: JP)
  Receive Date: 20171102
  Receipt Date: 20171207
  Transmission Date: 20180321
  Serious: Yes (Hospitalization)
  Sender: FDA-Public Use
  Company Number: JP-SUCAMPO PHARMACEUTICALS INC.-SPI201701360

PATIENT
  Age: 85 Year
  Sex: Female

DRUGS (6)
  1. UNKNOWN [Concomitant]
     Active Substance: UNSPECIFIED INGREDIENT
     Indication: CONSTIPATION
     Dosage: UNK
  2. REFLEX [Concomitant]
     Active Substance: MIRTAZAPINE
     Indication: AUTONOMIC NERVOUS SYSTEM IMBALANCE
     Dosage: 0.5 MG, QD
  3. SORENTMIN [Concomitant]
     Active Substance: BROTIZOLAM
     Indication: INSOMNIA
     Dosage: UNK
  4. UNKNOWN [Concomitant]
     Active Substance: UNSPECIFIED INGREDIENT
     Indication: HYPERTENSION
     Dosage: UNK
  5. UNKOWN [Concomitant]
     Indication: GASTRITIS
     Dosage: UNK
  6. AMITIZA [Suspect]
     Active Substance: LUBIPROSTONE
     Indication: CONSTIPATION
     Dosage: 24 MCG, BID
     Dates: start: 20171006, end: 20171010

REACTIONS (2)
  - Intestinal dilatation [Recovered/Resolved]
  - Vomiting [Recovered/Resolved]

NARRATIVE: CASE EVENT DATE: 20171010
